FAERS Safety Report 12397950 (Version 2)
Quarter: 2016Q3

REPORT INFORMATION
  Report Type: Spontaneous
  Country: US (occurrence: US)
  Receive Date: 20160524
  Receipt Date: 20160816
  Transmission Date: 20161109
  Serious: No
  Sender: FDA-Public Use
  Company Number: US-ASTRAZENECA-2016SE52725

PATIENT
  Sex: Female
  Weight: 83.9 kg

DRUGS (8)
  1. SYMBICORT [Suspect]
     Active Substance: BUDESONIDE\FORMOTEROL FUMARATE DIHYDRATE
     Indication: DYSPNOEA
     Dosage: 160/4.5 MCG, 2 PUFFS TWICE DAILY
     Route: 055
     Dates: start: 20160510
  2. VITAMIN D [Concomitant]
     Active Substance: CHOLECALCIFEROL
     Route: 048
     Dates: start: 1996
  3. TRIZANADINE HCL [Concomitant]
     Indication: SLEEP DISORDER
     Route: 048
     Dates: start: 2010
  4. VITAMIN C [Concomitant]
     Active Substance: ASCORBIC ACID
     Route: 048
     Dates: start: 1996
  5. MULTIVITAMIN [Concomitant]
     Active Substance: VITAMINS
     Route: 048
     Dates: start: 1996
  6. TRAMADOL. [Concomitant]
     Active Substance: TRAMADOL
     Indication: FIBROMYALGIA
     Dosage: 50 MG AS REQUIRED
     Route: 048
     Dates: start: 2014
  7. CALCIUM [Concomitant]
     Active Substance: CALCIUM
     Dates: start: 1996
  8. LEVOXOTHYRINE [Concomitant]
     Indication: THYROID DISORDER
     Route: 048
     Dates: start: 1992

REACTIONS (5)
  - Cough [Not Recovered/Not Resolved]
  - Dyspnoea [Not Recovered/Not Resolved]
  - Sleep disorder due to a general medical condition [Not Recovered/Not Resolved]
  - Product quality issue [Unknown]
  - Intentional product misuse [Not Recovered/Not Resolved]
